FAERS Safety Report 25435271 (Version 2)
Quarter: 2025Q3

REPORT INFORMATION
  Report Type: Spontaneous
  Country: US (occurrence: US)
  Receive Date: 20250613
  Receipt Date: 20250730
  Transmission Date: 20251020
  Serious: Yes (Other)
  Sender: SANOFI AVENTIS
  Company Number: US-SA-2025SA165136

PATIENT
  Sex: Female

DRUGS (7)
  1. DUPIXENT [Suspect]
     Active Substance: DUPILUMAB
     Indication: Asthma
     Dosage: 300 MG, QOW
     Route: 058
     Dates: start: 202202
  2. EPINEPHRINE [Suspect]
     Active Substance: EPINEPHRINE
  3. DIPHENHYDRAMINE [Suspect]
     Active Substance: DIPHENHYDRAMINE
     Indication: Hypersensitivity
  4. XEMBIFY [Suspect]
     Active Substance: HUMAN IMMUNOGLOBULIN G
     Indication: Immunodeficiency common variable
  5. ACETAMINOPHEN [Concomitant]
     Active Substance: ACETAMINOPHEN
  6. HEPARIN [Concomitant]
     Active Substance: HEPARIN SODIUM
  7. ALYGLO [Concomitant]
     Active Substance: HUMAN IMMUNOGLOBULIN G-STWK

REACTIONS (3)
  - Pulmonary embolism [Unknown]
  - Back pain [Unknown]
  - Vascular access site discomfort [Unknown]
